FAERS Safety Report 21466174 (Version 11)
Quarter: 2025Q3

REPORT INFORMATION
  Report Type: Spontaneous
  Country: US (occurrence: US)
  Receive Date: 20221017
  Receipt Date: 20250904
  Transmission Date: 20251020
  Serious: Yes (Other)
  Sender: PFIZER
  Company Number: US-PFIZER INC-202101619316

PATIENT
  Age: 63 Year
  Sex: Female
  Weight: 77.098 kg

DRUGS (3)
  1. XELJANZ XR [Suspect]
     Active Substance: TOFACITINIB CITRATE
     Indication: Rheumatoid arthritis
     Dosage: 11 MG, 1X/DAY
  2. XELJANZ XR [Suspect]
     Active Substance: TOFACITINIB CITRATE
     Dosage: 11MG ONCE A DAY
  3. LOSARTAN [Concomitant]
     Active Substance: LOSARTAN

REACTIONS (6)
  - Cerebrovascular accident [Not Recovered/Not Resolved]
  - Gastric ulcer [Recovering/Resolving]
  - Intentional dose omission [Unknown]
  - Anxiety [Unknown]
  - Mobility decreased [Unknown]
  - Depressed mood [Recovering/Resolving]

NARRATIVE: CASE EVENT DATE: 20250101
